FAERS Safety Report 18359245 (Version 1)
Quarter: 2020Q4

REPORT INFORMATION
  Report Type: Spontaneous
  Country: US (occurrence: US)
  Receive Date: 20201007
  Receipt Date: 20201007
  Transmission Date: 20210114
  Serious: Yes (Hospitalization, Disabling, Other)
  Sender: FDA-Public Use
  Company Number: None

PATIENT
  Age: 62 Year
  Sex: Female
  Weight: 109.8 kg

DRUGS (16)
  1. LOSARTAN. [Concomitant]
     Active Substance: LOSARTAN
  2. GABABENTINE [Concomitant]
  3. TRULICITY [Concomitant]
     Active Substance: DULAGLUTIDE
  4. TRAZODONE [Concomitant]
     Active Substance: TRAZODONE HYDROCHLORIDE
  5. E [Concomitant]
  6. C [Concomitant]
  7. FARXIGA [Concomitant]
     Active Substance: DAPAGLIFLOZIN PROPANEDIOL
  8. BUSPAR [Concomitant]
     Active Substance: BUSPIRONE HYDROCHLORIDE
  9. CYMBALTA [Suspect]
     Active Substance: DULOXETINE HYDROCHLORIDE
     Indication: FIBROMYALGIA
     Dosage: ?          QUANTITY:1 CAPSULE(S);?
  10. VITAMIN B12 [Concomitant]
     Active Substance: CYANOCOBALAMIN
  11. NOVOLOG [Concomitant]
     Active Substance: INSULIN ASPART
  12. ZANIFLEX [Concomitant]
  13. NORCO [Concomitant]
     Active Substance: ACETAMINOPHEN\HYDROCODONE BITARTRATE
  14. VIT. D [Concomitant]
  15. SENIOR MULTIVITAMIN [Concomitant]
  16. CAMOMILE TEA [Concomitant]

REACTIONS (9)
  - Nausea [None]
  - Depression [None]
  - Panic attack [None]
  - Sleep disorder [None]
  - Dyspnoea [None]
  - Paraesthesia [None]
  - Memory impairment [None]
  - Hypoaesthesia [None]
  - Nervousness [None]

NARRATIVE: CASE EVENT DATE: 20200922
